FAERS Safety Report 4670278-8 (Version None)
Quarter: 2005Q2

REPORT INFORMATION
  Report Type: 
  Country: None (occurrence: None)
  Receive Date: 20050520
  Receipt Date: 20050506
  Transmission Date: 20051028
  Serious: Yes (Other)
  Sender: FDA-Public Use
  Company Number: 2005071376

PATIENT
  Age: 55 Year
  Sex: Male
  Weight: 68.0396 kg

DRUGS (4)
  1. BENADRYL [Suspect]
     Indication: HYPERSENSITIVITY
     Dosage: 1 KAPSEAL Q 6H, ORAL
     Route: 048
     Dates: start: 20050423, end: 20050504
  2. CORICIDIN [Suspect]
     Indication: NASOPHARYNGITIS
     Dosage: 1 TAB Q 6H, ORAL
     Route: 048
     Dates: start: 20050426, end: 20050505
  3. PARACETAMOL (PARACETAMOL) [Concomitant]
  4. OLMESARTAN MEDOXOMIL (OLMESARTAN MEDOXOMIL) [Concomitant]

REACTIONS (3)
  - ASTHENIA [None]
  - DRUG WITHDRAWAL SYNDROME [None]
  - NAUSEA [None]
